FAERS Safety Report 16316864 (Version 1)
Quarter: 2019Q2

REPORT INFORMATION
  Report Type: Spontaneous
  Country: CN (occurrence: CN)
  Receive Date: 20190515
  Receipt Date: 20190515
  Transmission Date: 20190711
  Serious: Yes (Hospitalization, Other)
  Sender: FDA-Public Use
  Company Number: CN-BAXTER-2019BAX009379

PATIENT
  Age: 52 Year
  Sex: Female
  Weight: 60 kg

DRUGS (18)
  1. NORMAL SALINE [Suspect]
     Active Substance: SODIUM CHLORIDE
     Dosage: GIVEN WITH INJECTION CYCLOPHOSPHAMIDE 0.9 G
     Route: 041
     Dates: start: 20190417, end: 20190417
  2. NORMAL SALINE [Suspect]
     Active Substance: SODIUM CHLORIDE
     Dosage: GIVEN WITH INJECTION CYCLOPHOSPHAMIDE 0.9 G
     Route: 041
     Dates: start: 20190228, end: 20190228
  3. NORMAL SALINE [Suspect]
     Active Substance: SODIUM CHLORIDE
     Dosage: GIVEN WITH PIRARUBICIN HYDROCHLORIDE FOR INJECTION 90 MG
     Route: 041
     Dates: start: 20190228, end: 20190228
  4. PIRARUBICIN HYDROCHLORIDE [Suspect]
     Active Substance: PIRARUBICIN HYDROCHLORIDE
     Dosage: DILUTED WITH 5% NS 250ML (IVGTT, QD)
     Route: 041
     Dates: start: 20190228, end: 20190228
  5. ENDOXAN [Suspect]
     Active Substance: CYCLOPHOSPHAMIDE
     Dosage: DILUTED WITH 5% NS 250ML (IVGTT, QD)
     Route: 041
     Dates: start: 20190228, end: 20190228
  6. ENDOXAN [Suspect]
     Active Substance: CYCLOPHOSPHAMIDE
     Dosage: DILUTED WITH 5% NS 250ML (IVGTT, QD)
     Route: 041
     Dates: start: 20190417, end: 20190417
  7. PIRARUBICIN HYDROCHLORIDE [Suspect]
     Active Substance: PIRARUBICIN HYDROCHLORIDE
     Dosage: DILUTED WITH 5% NS 250ML (IVGTT, QD)
     Route: 041
     Dates: start: 20190417, end: 20190417
  8. NORMAL SALINE [Suspect]
     Active Substance: SODIUM CHLORIDE
     Indication: MEDICATION DILUTION
     Dosage: GIVEN WITH INJECTION CYCLOPHOSPHAMIDE 0.9 G
     Route: 041
     Dates: start: 20190203, end: 20190203
  9. NORMAL SALINE [Suspect]
     Active Substance: SODIUM CHLORIDE
     Dosage: GIVEN WITH PIRARUBICIN HYDROCHLORIDE FOR INJECTION 90 MG
     Route: 041
     Dates: start: 20190417, end: 20190417
  10. PIRARUBICIN HYDROCHLORIDE [Suspect]
     Active Substance: PIRARUBICIN HYDROCHLORIDE
     Dosage: DILUTED WITH 5% NS 250ML (IVGTT, QD)
     Route: 041
     Dates: start: 20190325, end: 20190325
  11. NORMAL SALINE [Suspect]
     Active Substance: SODIUM CHLORIDE
     Dosage: GIVEN WITH PIRARUBICIN HYDROCHLORIDE FOR INJECTION 90 MG
     Route: 041
     Dates: start: 20190203, end: 20190203
  12. ENDOXAN [Suspect]
     Active Substance: CYCLOPHOSPHAMIDE
     Indication: INVASIVE DUCTAL BREAST CARCINOMA
     Dosage: DILUTED WITH 5% NS 250ML (IVGTT, QD)
     Route: 041
     Dates: start: 20190203, end: 20190203
  13. PIRARUBICIN HYDROCHLORIDE [Suspect]
     Active Substance: PIRARUBICIN HYDROCHLORIDE
     Indication: INVASIVE DUCTAL BREAST CARCINOMA
     Dosage: DILUTED WITH 5% NS 250ML (IVGTT, QD)
     Route: 041
     Dates: start: 20190203, end: 20190203
  14. NORMAL SALINE [Suspect]
     Active Substance: SODIUM CHLORIDE
     Dosage: GIVEN WITH INJECTION CYCLOPHOSPHAMIDE 0.9 G
     Route: 041
     Dates: start: 20190325, end: 20190325
  15. ENDOXAN [Suspect]
     Active Substance: CYCLOPHOSPHAMIDE
     Dosage: DOSE RE-INTRODUCED
     Route: 041
  16. NORMAL SALINE [Suspect]
     Active Substance: SODIUM CHLORIDE
     Dosage: GIVEN WITH PIRARUBICIN HYDROCHLORIDE FOR INJECTION 90 MG
     Route: 041
     Dates: start: 20190325, end: 20190325
  17. ENDOXAN [Suspect]
     Active Substance: CYCLOPHOSPHAMIDE
     Dosage: DILUTED WITH 5% NS 250ML (IVGTT, QD)
     Route: 041
     Dates: start: 20190325, end: 20190325
  18. PIRARUBICIN HYDROCHLORIDE [Suspect]
     Active Substance: PIRARUBICIN HYDROCHLORIDE
     Dosage: DOSE RE-INTRODUCED
     Route: 041

REACTIONS (8)
  - Asthenia [Unknown]
  - Thrombocytopenia [Recovering/Resolving]
  - Leukopenia [Recovering/Resolving]
  - Mental impairment [Unknown]
  - Pallor [Unknown]
  - Productive cough [Unknown]
  - Pyrexia [Unknown]
  - Cough [Unknown]

NARRATIVE: CASE EVENT DATE: 201904
